FAERS Safety Report 5036393-4 (Version None)
Quarter: 2006Q2

REPORT INFORMATION
  Report Type: 
  Country: None (occurrence: None)
  Receive Date: 20060601
  Receipt Date: 20060414
  Transmission Date: 20061013
  Serious: No
  Sender: FDA-Public Use
  Company Number: US200604002525

PATIENT
  Age: 57 Year
  Sex: Female

DRUGS (7)
  1. CYMBALTA [Suspect]
     Indication: DEPRESSION
     Dosage: SEE IMAGE
     Dates: start: 20050101
  2. CYMBALTA [Suspect]
     Indication: DEPRESSION
     Dosage: SEE IMAGE
     Dates: start: 20050101
  3. LAMICTAL [Concomitant]
  4. LIPITOR [Concomitant]
  5. ACIPHEX [Concomitant]
  6. CELEXA [Concomitant]
  7. CYMBALTA [Suspect]

REACTIONS (5)
  - ANXIETY [None]
  - DRUG EFFECT DECREASED [None]
  - MOOD ALTERED [None]
  - NIGHTMARE [None]
  - STRESS [None]
